FAERS Safety Report 9018477 (Version 1)
Quarter: 2013Q1

REPORT INFORMATION
  Report Type: Spontaneous
  Country: US (occurrence: None)
  Receive Date: 20130111
  Receipt Date: 20130111
  Transmission Date: 20140127
  Serious: Yes (Disabling, Other)
  Sender: FDA-Public Use
  Company Number: None

PATIENT
  Age: 24 Month
  Sex: Male
  Weight: 68.04 kg

DRUGS (8)
  1. CLONAZEPAM [Suspect]
     Indication: ANXIETY
     Dosage: 3 TIMES DAILY PO
     Route: 048
     Dates: start: 20101015, end: 20121213
  2. CLONAZEPAM [Suspect]
     Indication: POST-TRAUMATIC STRESS DISORDER
     Dosage: 3 TIMES DAILY PO
     Route: 048
     Dates: start: 20101015, end: 20121213
  3. CLONAZEPAM [Suspect]
     Dosage: 3 TIMES DAILY PO
     Route: 048
     Dates: start: 20101015, end: 20121213
  4. TEMAZEPAM [Suspect]
     Dosage: 1 NIGHT TIME PO
     Route: 048
     Dates: start: 20101015, end: 20101213
  5. WELL BUTRIN [Concomitant]
  6. CLOZAPAM [Concomitant]
  7. TEMPAZAPAM [Concomitant]
  8. AND ADDERAL [Concomitant]

REACTIONS (1)
  - No adverse event [None]
